FAERS Safety Report 5675480-4 (Version None)
Quarter: 2008Q1

REPORT INFORMATION
  Report Type: 
  Country: None (occurrence: None)
  Receive Date: 20080321
  Receipt Date: 20080312
  Transmission Date: 20080703
  Serious: Yes (Hospitalization, Other)
  Sender: FDA-Public Use
  Company Number: NL-JNJFOC-20080303039

PATIENT
  Sex: Female
  Weight: 70 kg

DRUGS (13)
  1. INFLIXIMAB [Suspect]
     Route: 042
  2. INFLIXIMAB [Suspect]
     Route: 042
  3. INFLIXIMAB [Suspect]
     Route: 042
  4. INFLIXIMAB [Suspect]
     Route: 042
  5. INFLIXIMAB [Suspect]
     Route: 042
  6. INFLIXIMAB [Suspect]
     Indication: CROHN'S DISEASE
     Route: 042
  7. LANVIS [Concomitant]
     Indication: CROHN'S DISEASE
  8. ENTOCORT EC [Concomitant]
     Indication: CROHN'S DISEASE
  9. FOLIUM ZUMIR [Concomitant]
     Indication: CROHN'S DISEASE
  10. MERCAPTOPURINE [Concomitant]
     Indication: CROHN'S DISEASE
  11. CALCICHEW [Concomitant]
     Indication: OSTEOPOROSIS PROPHYLAXIS
  12. ACTONEL [Concomitant]
     Indication: OSTEOPOROSIS PROPHYLAXIS
  13. VITAMIN B-12 [Concomitant]

REACTIONS (3)
  - ABDOMINAL ADHESIONS [None]
  - PERITONITIS [None]
  - SEPSIS [None]
